FAERS Safety Report 5282304-6 (Version None)
Quarter: 2007Q1

REPORT INFORMATION
  Report Type: 
  Country: None (occurrence: None)
  Receive Date: 20070331
  Receipt Date: 20070320
  Transmission Date: 20070707
  Serious: Yes (Other)
  Sender: FDA-Public Use
  Company Number: US-PFIZER INC-2007024034

PATIENT
  Sex: Female
  Weight: 68.9 kg

DRUGS (9)
  1. CHANTIX [Suspect]
     Indication: SMOKING CESSATION THERAPY
     Dates: start: 20070304, end: 20070301
  2. XANAX [Concomitant]
  3. CRESTOR [Concomitant]
  4. ACETYLSALICYLIC ACID SRT [Concomitant]
  5. TENORMIN [Concomitant]
  6. PREVACID [Concomitant]
  7. AMITRIPTYLINE HCL [Concomitant]
  8. BENICAR [Concomitant]
  9. HYDROCHLOROTHIAZIDE [Concomitant]

REACTIONS (2)
  - GASTROENTERITIS VIRAL [None]
  - HALLUCINATION [None]
